FAERS Safety Report 23415083 (Version 1)
Quarter: 2024Q1

REPORT INFORMATION
  Report Type: Report from Study
  Country: US (occurrence: US)
  Receive Date: 20240118
  Receipt Date: 20240118
  Transmission Date: 20240410
  Serious: No
  Sender: FDA-Public Use
  Company Number: US-AstraZeneca-CH-00544008A

PATIENT

DRUGS (1)
  1. SOLIRIS [Suspect]
     Active Substance: ECULIZUMAB
     Indication: Myasthenia gravis
     Dosage: 1200 MILLIGRAM, EVERY 4 WEEKS
     Route: 065
     Dates: start: 20190219

REACTIONS (3)
  - Asthenia [Unknown]
  - Arthralgia [Unknown]
  - Myalgia [Unknown]
